FAERS Safety Report 7806455-4 (Version None)
Quarter: 2011Q4

REPORT INFORMATION
  Report Type: 
  Country: None (occurrence: None)
  Receive Date: 20111011
  Receipt Date: 20111005
  Transmission Date: 20120403
  Serious: No
  Sender: FDA-Public Use
  Company Number: US-PFIZER INC-2011238139

PATIENT
  Sex: Female
  Weight: 55.782 kg

DRUGS (1)
  1. XANAX [Suspect]
     Indication: PANIC ATTACK
     Dosage: .375 MG, 4X/DAY
     Route: 048
     Dates: start: 19970101

REACTIONS (1)
  - ANXIETY [None]
